FAERS Safety Report 4662643-X (Version None)
Quarter: 2005Q2

REPORT INFORMATION
  Report Type: 
  Country: None (occurrence: None)
  Receive Date: 20050512
  Receipt Date: 20050426
  Transmission Date: 20051028
  Serious: Yes (Life-Threatening, Other)
  Sender: FDA-Public Use
  Company Number: EWC050543782

PATIENT
  Age: 60 Year
  Sex: Female

DRUGS (1)
  1. CYMBALTA [Suspect]
     Indication: DIABETIC NEUROPATHY
     Dosage: 30 MG/1 DAY
     Dates: start: 20050404, end: 20050408

REACTIONS (3)
  - HYPONATRAEMIA [None]
  - TREATMENT NONCOMPLIANCE [None]
  - WALLENBERG SYNDROME [None]
